FAERS Safety Report 8348947-8 (Version None)
Quarter: 2012Q2

REPORT INFORMATION
  Report Type: 
  Country: None (occurrence: None)
  Receive Date: 20120510
  Receipt Date: 20120426
  Transmission Date: 20120825
  Serious: No
  Sender: FDA-Public Use
  Company Number: US-PFIZER INC-2012111978

PATIENT
  Age: 70 Year
  Sex: Female

DRUGS (7)
  1. HYDROCODONE BITARTRATE [Suspect]
  2. MORPHINE SULFATE [Suspect]
  3. CODEINE SULFATE [Suspect]
  4. CIPROFLOXACIN [Suspect]
  5. PREMARIN [Suspect]
  6. PHENOBARBITAL TAB [Suspect]
  7. BENADRYL [Suspect]

REACTIONS (1)
  - DRUG HYPERSENSITIVITY [None]
